FAERS Safety Report 20734389 (Version 1)
Quarter: 2022Q2

REPORT INFORMATION
  Report Type: Spontaneous
  Country: US (occurrence: US)
  Receive Date: 20220421
  Receipt Date: 20220421
  Transmission Date: 20220721
  Serious: No
  Sender: FDA-Public Use
  Company Number: US-APOTEX-2022AP005094

PATIENT
  Sex: Female

DRUGS (2)
  1. TRAVOPROST [Suspect]
     Active Substance: TRAVOPROST
     Indication: Ocular hypertension
     Dosage: 2 GTT DROPS, Q.H.S. (1 DROP EACH EYE)
     Route: 047
     Dates: start: 20220212
  2. TRAVOPROST [Suspect]
     Active Substance: TRAVOPROST
     Dosage: 2 GTT DROPS, QD (1 DROP ON EACH EYE ONCE A DAY)
     Route: 047

REACTIONS (3)
  - Extra dose administered [Unknown]
  - Product delivery mechanism issue [Unknown]
  - No adverse event [Unknown]

NARRATIVE: CASE EVENT DATE: 20220101
